FAERS Safety Report 9618404 (Version 1)
Quarter: 2013Q4

REPORT INFORMATION
  Report Type: Spontaneous
  Country: BR (occurrence: BR)
  Receive Date: 20131014
  Receipt Date: 20131014
  Transmission Date: 20140711
  Serious: Yes (Death, Other)
  Sender: FDA-Public Use
  Company Number: BR-RANBAXY-2013R5-73798

PATIENT
  Age: 9 Year
  Sex: Male
  Weight: 65 kg

DRUGS (1)
  1. CEFUROXIME AXETIL [Suspect]
     Indication: PHARYNGITIS
     Dosage: 500 MG, BID
     Route: 048
     Dates: start: 20130922, end: 20130928

REACTIONS (2)
  - Wound [Not Recovered/Not Resolved]
  - Pruritus [Not Recovered/Not Resolved]
